FAERS Safety Report 12898359 (Version 2)
Quarter: 2016Q4

REPORT INFORMATION
  Report Type: Report from Study
  Country: US (occurrence: US)
  Receive Date: 20161031
  Receipt Date: 20161108
  Transmission Date: 20170207
  Serious: Yes (Hospitalization, Other)
  Sender: FDA-Public Use
  Company Number: US-GILEAD-2016-0229059

PATIENT
  Age: 80 Year
  Sex: Female
  Weight: 82.86 kg

DRUGS (11)
  1. METOPROLOL. [Concomitant]
     Active Substance: METOPROLOL
  2. DIOVAN [Concomitant]
     Active Substance: VALSARTAN
  3. ALLOPURINOL. [Concomitant]
     Active Substance: ALLOPURINOL
  4. VENTOLIN [Concomitant]
     Active Substance: ALBUTEROL SULFATE
  5. ADVAIR HFA [Concomitant]
     Active Substance: FLUTICASONE PROPIONATE\SALMETEROL XINAFOATE
  6. ASPIRIN                            /00002701/ [Concomitant]
     Active Substance: ASPIRIN
  7. AMBRISENTAN [Suspect]
     Active Substance: AMBRISENTAN
     Dosage: 10 MG, QD
     Route: 065
     Dates: start: 201608, end: 20161011
  8. REVATIO [Concomitant]
     Active Substance: SILDENAFIL CITRATE
  9. AMBRISENTAN [Suspect]
     Active Substance: AMBRISENTAN
     Indication: PULMONARY ARTERIAL HYPERTENSION
     Dosage: 5 MG, QD
     Route: 065
     Dates: start: 20160728, end: 201608
  10. FOLBIC [Concomitant]
     Active Substance: CYANOCOBALAMIN\FOLIC ACID\PYRIDOXINE
  11. TOPROL XL [Concomitant]
     Active Substance: METOPROLOL SUCCINATE

REACTIONS (14)
  - Decreased appetite [Recovering/Resolving]
  - Oedema [Recovering/Resolving]
  - Tension headache [Recovering/Resolving]
  - Gait disturbance [Unknown]
  - Peripheral swelling [Recovered/Resolved]
  - Dyspnoea [Recovering/Resolving]
  - Nasal congestion [Recovering/Resolving]
  - Vomiting [Recovered/Resolved]
  - Dizziness [Recovering/Resolving]
  - Peripheral swelling [Recovering/Resolving]
  - Pyrexia [Recovering/Resolving]
  - Cardiac failure congestive [Recovering/Resolving]
  - Headache [Recovered/Resolved]
  - Abdominal discomfort [Recovering/Resolving]

NARRATIVE: CASE EVENT DATE: 20160710
